FAERS Safety Report 7771957-6 (Version None)
Quarter: 2011Q3

REPORT INFORMATION
  Report Type: 
  Country: None (occurrence: None)
  Receive Date: 20110920
  Receipt Date: 20110905
  Transmission Date: 20111222
  Serious: Yes (Hospitalization)
  Sender: FDA-Public Use
  Company Number: TPA2011A05395

PATIENT
  Age: 60 Year
  Sex: Male

DRUGS (2)
  1. FEBURIC (FEBUXOSTAT) [Suspect]
     Indication: HYPERURICAEMIA
     Dosage: 20 MG (20 MG,1 IN 1 D) ORAL, 40 MG (40 MG, 1 IN 1 D) 1) ORAL
     Route: 048
     Dates: start: 20110709, end: 20110809
  2. FEBURIC (FEBUXOSTAT) [Suspect]
     Indication: HYPERURICAEMIA
     Dosage: 20 MG (20 MG,1 IN 1 D) ORAL, 40 MG (40 MG, 1 IN 1 D) 1) ORAL
     Route: 048
     Dates: start: 20110810, end: 20110824

REACTIONS (3)
  - ARTHRALGIA [None]
  - MALAISE [None]
  - LIVER DISORDER [None]
